FAERS Safety Report 5862905-4 (Version None)
Quarter: 2008Q3

REPORT INFORMATION
  Report Type: 
  Country: None (occurrence: None)
  Receive Date: 20080828
  Receipt Date: 20080822
  Transmission Date: 20090109
  Serious: Yes (Other)
  Sender: FDA-Public Use
  Company Number: A0743960A

PATIENT
  Age: 73 Year
  Sex: Female

DRUGS (5)
  1. VALTREX [Suspect]
     Indication: GENITAL HERPES
     Dosage: 1000MG PER DAY
     Route: 048
     Dates: start: 20071119
  2. ZOCOR [Concomitant]
  3. NEXIUM [Concomitant]
  4. MUPIROCIN [Concomitant]
  5. CEPHALEXIN [Concomitant]

REACTIONS (2)
  - HERPES VIRUS INFECTION [None]
  - MALIGNANT MELANOMA [None]
